FAERS Safety Report 7733326-4 (Version None)
Quarter: 2011Q3

REPORT INFORMATION
  Report Type: 
  Country: None (occurrence: None)
  Receive Date: 20110907
  Receipt Date: 20110826
  Transmission Date: 20111222
  Serious: Yes (Hospitalization)
  Sender: FDA-Public Use
  Company Number: US-BAYER-2011-000452

PATIENT
  Age: 30 Year
  Sex: Female
  Weight: 73 kg

DRUGS (6)
  1. IBUPROFEN [Concomitant]
     Indication: BACK PAIN
     Dosage: UNK
     Dates: start: 20030101, end: 20080401
  2. CLARITIN [Concomitant]
     Indication: SINUS CONGESTION
     Dosage: UNK
     Dates: start: 20030101, end: 20110501
  3. IMITREX [Concomitant]
     Indication: MIGRAINE
     Dosage: UNK
     Dates: start: 20030101, end: 20110501
  4. ZOMIG [Concomitant]
     Indication: MIGRAINE
     Dosage: UNK
     Dates: start: 20030101, end: 20110501
  5. IBUPROFEN [Concomitant]
     Indication: PAIN
  6. YAZ [Suspect]
     Indication: PRODUCT USED FOR UNKNOWN INDICATION
     Dosage: UNK
     Route: 048
     Dates: start: 20070801, end: 20080401

REACTIONS (2)
  - PULMONARY EMBOLISM [None]
  - INJURY [None]
